FAERS Safety Report 4811911-7 (Version None)
Quarter: 2005Q4

REPORT INFORMATION
  Report Type: 
  Country: None (occurrence: None)
  Receive Date: 20051026
  Receipt Date: 20051013
  Transmission Date: 20060501
  Serious: Yes (Hospitalization)
  Sender: FDA-Public Use
  Company Number: 2005141893

PATIENT
  Age: 20 Year
  Sex: Male

DRUGS (5)
  1. CEFOPODOXIME PROXETIL [Suspect]
     Indication: OTITIS MEDIA
     Dosage: 200 MG ORAL
     Route: 048
     Dates: start: 20050811, end: 20050818
  2. DEPAKENE [Concomitant]
  3. ACETAMINOPHEN [Concomitant]
  4. SUBUTEX [Concomitant]
  5. VALPROATE SODIUM [Concomitant]

REACTIONS (3)
  - CHEST PAIN [None]
  - PANCREATITIS ACUTE [None]
  - RESPIRATORY FAILURE [None]
